FAERS Safety Report 19056997 (Version 1)
Quarter: 2021Q1

REPORT INFORMATION
  Report Type: Report from Study
  Country: DO (occurrence: DO)
  Receive Date: 20210325
  Receipt Date: 20210325
  Transmission Date: 20210420
  Serious: Yes (Life-Threatening)
  Sender: FDA-Public Use
  Company Number: NVSC2021DO068447

PATIENT
  Age: 58 Year
  Sex: Female

DRUGS (3)
  1. EXFORGE [Suspect]
     Active Substance: AMLODIPINE BESYLATE\VALSARTAN
     Dosage: 5/320 MG
     Route: 065
     Dates: start: 20210318
  2. EXFORGE [Suspect]
     Active Substance: AMLODIPINE BESYLATE\VALSARTAN
     Dosage: (10/320 MG START DATE: 5 YEARS AGO)
     Route: 065
     Dates: end: 20210318
  3. EXFORGE [Suspect]
     Active Substance: AMLODIPINE BESYLATE\VALSARTAN
     Indication: PRODUCT USED FOR UNKNOWN INDICATION
     Dosage: (5/320 MG, START DATE: 7 YEARS AGO, STOP DATE: 5 YEARS AGO)
     Route: 065

REACTIONS (2)
  - Hypertensive crisis [Unknown]
  - Blood pressure decreased [Unknown]
